FAERS Safety Report 4277411-0 (Version None)
Quarter: 2004Q1

REPORT INFORMATION
  Report Type: 
  Country: None (occurrence: None)
  Receive Date: 20040122
  Receipt Date: 20040113
  Transmission Date: 20041129
  Serious: Yes (Other)
  Sender: FDA-Public Use
  Company Number: US-GLAXOSMITHKLINE-A0494019A

PATIENT

DRUGS (2)
  1. IMITREX [Suspect]
     Indication: ILL-DEFINED DISORDER
     Dosage: 100MG UNKNOWN
     Route: 048
  2. SSRI [Suspect]
     Indication: ILL-DEFINED DISORDER
     Route: 065

REACTIONS (1)
  - SEROTONIN SYNDROME [None]
